FAERS Safety Report 9817774 (Version 1)
Quarter: 2014Q1

REPORT INFORMATION
  Report Type: Spontaneous
  Country: US (occurrence: None)
  Receive Date: 20140110
  Receipt Date: 20140110
  Transmission Date: 20141002
  Serious: No
  Sender: FDA-Public Use
  Company Number: None

PATIENT
  Age: 45 Year
  Sex: Male

DRUGS (1)
  1. OLANZAPINE [Suspect]
     Indication: MENTAL DISORDER
     Route: 048
     Dates: start: 20130903, end: 20131105

REACTIONS (1)
  - Hepatic enzyme increased [None]
